FAERS Safety Report 8180477-9 (Version None)
Quarter: 2012Q1

REPORT INFORMATION
  Report Type: 
  Country: None (occurrence: None)
  Receive Date: 20120302
  Receipt Date: 20120220
  Transmission Date: 20120608
  Serious: Yes (Other)
  Sender: FDA-Public Use
  Company Number: JP-ALLERGAN-1202275US

PATIENT
  Age: 62 Year
  Sex: Female

DRUGS (1)
  1. BOTOX [Suspect]
     Indication: SKIN WRINKLING
     Dosage: UNK
     Route: 023
     Dates: start: 20100301, end: 20100301

REACTIONS (5)
  - MASS [None]
  - INJECTION SITE MASS [None]
  - HERNIA [None]
  - MUSCLE ATROPHY [None]
  - SKIN DISORDER [None]
